FAERS Safety Report 9312691 (Version 1)
Quarter: 2013Q2

REPORT INFORMATION
  Report Type: Spontaneous
  Country: ES (occurrence: ES)
  Receive Date: 20130528
  Receipt Date: 20130528
  Transmission Date: 20140414
  Serious: Yes (Life-Threatening, Hospitalization)
  Sender: FDA-Public Use
  Company Number: ES-ASTRAZENECA-2013SE36987

PATIENT
  Age: 71 Year
  Sex: Male

DRUGS (4)
  1. CASODEX [Suspect]
     Indication: PROSTATE CANCER
     Route: 048
     Dates: start: 20120711, end: 20121128
  2. ELIGARD BIANNUAL [Suspect]
     Indication: PROSTATE CANCER
     Route: 058
     Dates: start: 20120727, end: 20120727
  3. ENALAPRIL [Concomitant]
     Indication: HYPERTENSION
     Route: 048
     Dates: start: 20120810
  4. ALOPURINOL [Concomitant]
     Indication: HYPERURICAEMIA
     Route: 048
     Dates: start: 20120810, end: 20121123

REACTIONS (2)
  - Myocardial ischaemia [Recovered/Resolved with Sequelae]
  - Acute myocardial infarction [Unknown]
